FAERS Safety Report 6912223-8 (Version None)
Quarter: 2010Q3

REPORT INFORMATION
  Report Type: 
  Country: None (occurrence: None)
  Receive Date: 20100806
  Receipt Date: 20080204
  Transmission Date: 20110219
  Serious: No
  Sender: FDA-Public Use
  Company Number: US-PFIZER INC-2008011380

PATIENT
  Sex: Male
  Weight: 89.36 kg

DRUGS (2)
  1. DETROL LA [Suspect]
     Indication: HYPERTONIC BLADDER
     Route: 048
     Dates: start: 20080101, end: 20080101
  2. DETROL [Suspect]
     Indication: HYPERTONIC BLADDER
     Route: 048
     Dates: start: 20080101

REACTIONS (4)
  - DRY MOUTH [None]
  - FATIGUE [None]
  - SINUS DISORDER [None]
  - UPPER AIRWAY OBSTRUCTION [None]
